FAERS Safety Report 7271544-2 (Version None)
Quarter: 2011Q1

REPORT INFORMATION
  Report Type: 
  Country: None (occurrence: None)
  Receive Date: 20110128
  Receipt Date: 20110128
  Transmission Date: 20110831
  Serious: Yes (Other)
  Sender: FDA-Public Use
  Company Number: None

PATIENT
  Age: 42 Year
  Sex: Female

DRUGS (1)
  1. BUPROPION HYDROCHLORIDE (WELLBUTRIN XL) [Suspect]
     Dates: start: 20110117, end: 20110125

REACTIONS (8)
  - NAUSEA [None]
  - HEADACHE [None]
  - TREMOR [None]
  - DIZZINESS [None]
  - CONVULSION [None]
  - DRUG DOSE OMISSION [None]
  - DEPRESSION [None]
  - INAPPROPRIATE SCHEDULE OF DRUG ADMINISTRATION [None]
